FAERS Safety Report 9278313 (Version 1)
Quarter: 2013Q2

REPORT INFORMATION
  Report Type: Spontaneous
  Country: US (occurrence: None)
  Receive Date: 20130506
  Receipt Date: 20130506
  Transmission Date: 20140414
  Serious: No
  Sender: FDA-Public Use
  Company Number: None

PATIENT
  Age: 34 Year
  Sex: Female
  Weight: 88 kg

DRUGS (1)
  1. BENLYSTA [Suspect]
     Indication: SYSTEMIC LUPUS ERYTHEMATOSUS
     Dosage: NOT SURE-WEIGHT BASED MONTHLY IV
     Route: 042

REACTIONS (5)
  - Anxiety [None]
  - Restless legs syndrome [None]
  - Insomnia [None]
  - Nausea [None]
  - Depression [None]
